FAERS Safety Report 4320796-7 (Version None)
Quarter: 2004Q1

REPORT INFORMATION
  Report Type: 
  Country: None (occurrence: None)
  Receive Date: 20040315
  Receipt Date: 20030529
  Transmission Date: 20041129
  Serious: Yes (Hospitalization)
  Sender: FDA-Public Use
  Company Number: PHEH2003US04598

PATIENT
  Age: 25 Year
  Sex: Female

DRUGS (1)
  1. TRILEPTAL [Suspect]
     Indication: PARTIAL SEIZURES WITH SECONDARY GENERALISATION
     Dosage: 300 + 600 + 750 MG, BID, ORAL
     Route: 048
     Dates: start: 20010101

REACTIONS (2)
  - CONVULSION [None]
  - EYELID PTOSIS [None]
